FAERS Safety Report 9657745 (Version 1)
Quarter: 2013Q4

REPORT INFORMATION
  Report Type: Spontaneous
  Country: US (occurrence: US)
  Receive Date: 20131030
  Receipt Date: 20131030
  Transmission Date: 20140711
  Serious: No
  Sender: FDA-Public Use
  Company Number: US-ENDO PHARMACEUTICALS INC.-HCDA20130031

PATIENT
  Age: 68 Year
  Sex: Female

DRUGS (3)
  1. HYDROCODONE/ACETAMINOPHEN 10MG/500MG [Suspect]
     Indication: PAIN
     Dosage: 60/3000 MG
     Route: 048
     Dates: start: 20121008, end: 20121025
  2. HYDROCODONE/ACETAMINOPHEN 10MG/500MG [Suspect]
     Indication: SURGERY
     Dosage: UNKNOWN
     Route: 048
     Dates: start: 20121026
  3. HYDROCODONE/ACETAMINOPHEN 10MG/500MG [Suspect]
     Dosage: UNKNOWN
     Route: 048

REACTIONS (2)
  - Disorientation [Unknown]
  - Anxiety [Unknown]
